FAERS Safety Report 8183243-3 (Version None)
Quarter: 2012Q1

REPORT INFORMATION
  Report Type: 
  Country: None (occurrence: None)
  Receive Date: 20120305
  Receipt Date: 20120227
  Transmission Date: 20120608
  Serious: Yes (Death)
  Sender: FDA-Public Use
  Company Number: JP-ASTELLAS-2012JP001565

PATIENT
  Sex: Male
  Weight: 47 kg

DRUGS (2)
  1. TACROLIMUS [Suspect]
     Indication: MYASTHENIA GRAVIS
     Dosage: 3 MG, UNKNOWN/D
     Route: 048
     Dates: start: 20101103, end: 20110214
  2. MESTINON [Concomitant]
     Indication: MYASTHENIA GRAVIS
     Dosage: 180 MG, UNKNOWN/D
     Route: 048
     Dates: start: 20101110, end: 20110214

REACTIONS (1)
  - GASTRIC CANCER [None]
